FAERS Safety Report 17817879 (Version 2)
Quarter: 2020Q4

REPORT INFORMATION
  Report Type: Spontaneous
  Country: CN (occurrence: CN)
  Receive Date: 20200522
  Receipt Date: 20201214
  Transmission Date: 20210113
  Serious: Yes (Other)
  Sender: FDA-Public Use
  Company Number: CN-BAYER-2020-090052

PATIENT
  Age: 63 Year
  Sex: Male

DRUGS (4)
  1. METHYLPREDNISOLONE. [Concomitant]
     Active Substance: METHYLPREDNISOLONE
     Indication: ANTIINFLAMMATORY THERAPY
     Dosage: 80-40MG, FOR 5 DAYS
     Route: 042
     Dates: start: 20200225
  2. CHLOROQUINE. [Suspect]
     Active Substance: CHLOROQUINE
     Indication: COVID-19
     Dosage: 500 MG, BID, FOR 7 DAYS
     Route: 048
     Dates: start: 20200225
  3. METHYLPREDNISOLONE. [Concomitant]
     Active Substance: METHYLPREDNISOLONE
     Indication: LUNG DISORDER
  4. TOCILIZUMAB. [Concomitant]
     Active Substance: TOCILIZUMAB
     Indication: COVID-19
     Dosage: 8 MG/KG IMMEDIATELY
     Route: 042
     Dates: start: 20200228

REACTIONS (10)
  - Leukopenia [Recovering/Resolving]
  - Hepatic function abnormal [Recovering/Resolving]
  - PO2 decreased [None]
  - Lymphocyte count increased [None]
  - Chest discomfort [None]
  - Oxygen saturation decreased [None]
  - Dyspnoea [None]
  - Hypoxia [None]
  - Therapeutic response unexpected [None]
  - Cytokine storm [Recovering/Resolving]

NARRATIVE: CASE EVENT DATE: 2020
